FAERS Safety Report 4528831-8 (Version None)
Quarter: 2004Q4

REPORT INFORMATION
  Report Type: 
  Country: None (occurrence: None)
  Receive Date: 20041216
  Receipt Date: 20041208
  Transmission Date: 20050328
  Serious: Yes (Hospitalization)
  Sender: FDA-Public Use
  Company Number: 2004-0323

PATIENT
  Age: 3 Week
  Sex: Male

DRUGS (2)
  1. RANIPLEX [Suspect]
     Indication: GASTROOESOPHAGEAL REFLUX DISEASE
     Dosage: 15MGKD UNKNOWN
     Route: 048
     Dates: start: 20041202, end: 20041208
  2. PRIMPERAN [Concomitant]
     Indication: GASTROOESOPHAGEAL REFLUX DISEASE
     Route: 048
     Dates: start: 20041202

REACTIONS (7)
  - APLASTIC ANAEMIA [None]
  - HAEMOGLOBIN DECREASED [None]
  - HAEMOLYTIC ANAEMIA [None]
  - HAPTOGLOBIN DECREASED [None]
  - HYPERBILIRUBINAEMIA [None]
  - JAUNDICE [None]
  - TRANSAMINASES DECREASED [None]
